FAERS Safety Report 17401051 (Version 1)
Quarter: 2020Q1

REPORT INFORMATION
  Report Type: Report from Study
  Country: US (occurrence: US)
  Receive Date: 20200211
  Receipt Date: 20200211
  Transmission Date: 20200409
  Serious: Yes (Other)
  Sender: FDA-Public Use
  Company Number: US-SA-2018SA322710

PATIENT
  Age: 68 Year
  Sex: Female

DRUGS (2)
  1. IMIGLUCERASE [Suspect]
     Active Substance: IMIGLUCERASE
     Indication: GAUCHER^S DISEASE
     Dosage: 2000 UNK, QOW
     Route: 041
     Dates: start: 20180911
  2. IMIGLUCERASE [Suspect]
     Active Substance: IMIGLUCERASE
     Dosage: 2000 UNK, QOW
     Route: 041

REACTIONS (5)
  - Back injury [Recovered/Resolved]
  - Traumatic fracture [Recovered/Resolved]
  - Joint swelling [Recovered/Resolved]
  - Arrhythmia [Unknown]
  - Fall [Unknown]

NARRATIVE: CASE EVENT DATE: 20181117
